FAERS Safety Report 9928792 (Version 3)
Quarter: 2014Q3

REPORT INFORMATION
  Report Type: Spontaneous
  Country: US (occurrence: US)
  Receive Date: 20140227
  Receipt Date: 20140812
  Transmission Date: 20150326
  Serious: Yes (Hospitalization)
  Sender: FDA-Public Use
  Company Number: US-PFIZER INC-2014054673

PATIENT
  Age: 53 Year
  Sex: Male

DRUGS (9)
  1. PRAVASTATIN [Concomitant]
     Active Substance: PRAVASTATIN\PRAVASTATIN SODIUM
  2. LYRICA [Suspect]
     Active Substance: PREGABALIN
     Dosage: UNK
  3. VALTREX [Concomitant]
     Active Substance: VALACYCLOVIR HYDROCHLORIDE
  4. TRUVADA [Concomitant]
     Active Substance: EMTRICITABINE\TENOFOVIR DISOPROXIL FUMARATE
  5. ALPRAZOLAM. [Concomitant]
     Active Substance: ALPRAZOLAM
     Dosage: UNK
  6. LYRICA [Suspect]
     Active Substance: PREGABALIN
     Dosage: 150 MG, 3X/DAY
     Route: 048
     Dates: start: 20140804
  7. KALETRA [Concomitant]
     Active Substance: LOPINAVIR\RITONAVIR
  8. SUSTIVA [Concomitant]
     Active Substance: EFAVIRENZ
  9. DILANTIN [Concomitant]
     Active Substance: PHENYTOIN
     Dosage: 100 MG, 2 BID

REACTIONS (1)
  - Activities of daily living impaired [Unknown]
